FAERS Safety Report 15879660 (Version 1)
Quarter: 2019Q1

REPORT INFORMATION
  Report Type: Report from Study
  Country: JP (occurrence: JP)
  Receive Date: 20190128
  Receipt Date: 20190128
  Transmission Date: 20190417
  Serious: Yes (Hospitalization)
  Sender: FDA-Public Use
  Company Number: PHHY2013JP167815

PATIENT
  Age: 54 Year
  Sex: Male
  Weight: 66 kg

DRUGS (3)
  1. VOTRIENT [Suspect]
     Active Substance: PAZOPANIB HYDROCHLORIDE
     Dosage: 600 MG, QD
     Route: 048
     Dates: start: 20130625, end: 20130706
  2. VOTRIENT [Suspect]
     Active Substance: PAZOPANIB HYDROCHLORIDE
     Indication: LIPOSARCOMA
     Dosage: 600 MG, QD
     Route: 048
     Dates: start: 20130416, end: 20130610
  3. VOTRIENT [Suspect]
     Active Substance: PAZOPANIB HYDROCHLORIDE
     Dosage: 800 MG, QD
     Route: 048
     Dates: start: 20130611, end: 20130624

REACTIONS (3)
  - Hypertension [Recovered/Resolved]
  - Retinal detachment [Recovered/Resolved with Sequelae]
  - Diarrhoea [Recovered/Resolved]

NARRATIVE: CASE EVENT DATE: 20130423
